FAERS Safety Report 8514689-9 (Version None)
Quarter: 2012Q3

REPORT INFORMATION
  Report Type: 
  Country: None (occurrence: None)
  Receive Date: 20120712
  Receipt Date: 20120705
  Transmission Date: 20120928
  Serious: Yes (Other)
  Sender: FDA-Public Use
  Company Number: 2012032800

PATIENT
  Age: 12 Year
  Sex: Female

DRUGS (1)
  1. PRIVIGEN [Suspect]
     Indication: PROPHYLAXIS AGAINST TRANSPLANT REJECTION
     Dosage: (80 GM INTRAVENOUS (NOT OTHERWISE SPECIFIED))
     Route: 042

REACTIONS (2)
  - HAEMOLYTIC ANAEMIA [None]
  - OFF LABEL USE [None]
